FAERS Safety Report 9508406 (Version 4)
Quarter: 2013Q4

REPORT INFORMATION
  Report Type: Spontaneous
  Country: SE (occurrence: SE)
  Receive Date: 20130909
  Receipt Date: 20131007
  Transmission Date: 20140711
  Serious: Yes (Life-Threatening, Hospitalization, Other)
  Sender: FDA-Public Use
  Company Number: PHHY2013SE097805

PATIENT
  Age: 53 Year
  Sex: Female

DRUGS (4)
  1. GILENYA [Suspect]
     Indication: MULTIPLE SCLEROSIS
     Route: 048
     Dates: start: 20130422, end: 20130618
  2. AMPHETAMINE [Concomitant]
     Indication: FATIGUE
  3. GABAPENTIN [Concomitant]
     Indication: NEURALGIA
  4. MODAFINIL [Concomitant]
     Indication: FATIGUE

REACTIONS (9)
  - Cardiac arrest [Recovered/Resolved]
  - Chest pain [Unknown]
  - Ventricular fibrillation [Not Recovered/Not Resolved]
  - Arteriospasm coronary [Unknown]
  - Coronary artery dissection [Unknown]
  - Ventricular tachycardia [Unknown]
  - Coma scale abnormal [Unknown]
  - Heart rate decreased [Unknown]
  - Urinary tract infection [Unknown]
